FAERS Safety Report 14875848 (Version 1)
Quarter: 2018Q2

REPORT INFORMATION
  Report Type: Spontaneous
  Country: US (occurrence: US)
  Receive Date: 20180510
  Receipt Date: 20180510
  Transmission Date: 20180711
  Serious: Yes (Disabling, Other)
  Sender: FDA-Public Use
  Company Number: US-DENTSPLY-2018SCDP000113

PATIENT

DRUGS (4)
  1. KETOROLAC [Concomitant]
     Active Substance: KETOROLAC\KETOROLAC TROMETHAMINE
     Dosage: UNK
  2. LIDOCAINE HCL [Suspect]
     Active Substance: LIDOCAINE HYDROCHLORIDE
     Indication: LOCAL ANAESTHESIA
     Dosage: 1.5% LIDOCAINE
  3. 2% LIDOCAINE HCL INJECTION WITH EPINEPHRINE 1-100,000 [Suspect]
     Active Substance: EPINEPHRINE\LIDOCAINE HYDROCHLORIDE
     Indication: NERVE BLOCK
     Dosage: UNK
  4. BUPIVACAINE AND ADRENALIN [Suspect]
     Active Substance: BUPIVACAINE HYDROCHLORIDE\EPINEPHRINE
     Indication: LOCAL ANAESTHESIA
     Dosage: UNK

REACTIONS (3)
  - Myositis [Recovering/Resolving]
  - Myopathy toxic [Recovering/Resolving]
  - Drug ineffective [None]
